FAERS Safety Report 5737803-7 (Version None)
Quarter: 2008Q2

REPORT INFORMATION
  Report Type: 
  Country: None (occurrence: None)
  Receive Date: 20080513
  Receipt Date: 20080513
  Transmission Date: 20081010
  Serious: Yes (Life-Threatening)
  Sender: FDA-Public Use
  Company Number: None

PATIENT
  Sex: Female
  Weight: 75.2971 kg

DRUGS (1)
  1. DIGITEK  .25MG  BERTEK [Suspect]
     Indication: HEART RATE IRREGULAR
     Dosage: .25MG  1 TABLET DAILY PO
     Route: 048
     Dates: start: 20060710, end: 20080218

REACTIONS (3)
  - OVERDOSE [None]
  - PALPITATIONS [None]
  - PHARMACEUTICAL PRODUCT COMPLAINT [None]
